FAERS Safety Report 9482016 (Version 2)
Quarter: 2013Q3

REPORT INFORMATION
  Report Type: Report from Study
  Country: DE (occurrence: DE)
  Receive Date: 20130828
  Receipt Date: 20130828
  Transmission Date: 20140515
  Serious: Yes (Hospitalization)
  Sender: FDA-Public Use
  Company Number: DE-ROCHE-1267041

PATIENT
  Age: 60 Year
  Sex: Female

DRUGS (18)
  1. RITUXIMAB [Suspect]
     Indication: RHEUMATOID ARTHRITIS
     Route: 065
     Dates: start: 200612
  2. RITUXIMAB [Suspect]
     Route: 065
     Dates: start: 20070821
  3. RITUXIMAB [Suspect]
     Route: 065
     Dates: start: 20080429
  4. RITUXIMAB [Suspect]
     Route: 065
     Dates: start: 20081127
  5. RITUXIMAB [Suspect]
     Route: 065
     Dates: start: 20090616
  6. RITUXIMAB [Suspect]
     Route: 065
     Dates: start: 20100225
  7. RITUXIMAB [Suspect]
     Route: 065
     Dates: start: 201010
  8. RITUXIMAB [Suspect]
     Route: 065
     Dates: start: 20110614
  9. RITUXIMAB [Suspect]
     Route: 065
     Dates: start: 20120120
  10. RITUXIMAB [Suspect]
     Route: 065
     Dates: start: 20120827
  11. METHOTREXATE [Concomitant]
     Indication: RHEUMATOID ARTHRITIS
     Route: 065
     Dates: start: 200704
  12. METHOTREXATE [Concomitant]
     Route: 051
     Dates: start: 200704
  13. METHOTREXATE [Concomitant]
     Route: 051
     Dates: end: 200709
  14. SULFASALAZIN [Concomitant]
     Indication: RHEUMATOID ARTHRITIS
     Route: 065
     Dates: start: 200602, end: 200701
  15. ALENDRONIC ACID [Concomitant]
     Route: 065
     Dates: start: 200507
  16. RAMIPRIL [Concomitant]
     Route: 065
     Dates: start: 200812
  17. HCTZ [Concomitant]
     Route: 065
     Dates: start: 201201
  18. IBUPROFEN [Concomitant]
     Route: 065
     Dates: start: 200605

REACTIONS (1)
  - Rectocele [Recovered/Resolved]
